FAERS Safety Report 6232712-1 (Version None)
Quarter: 2009Q2

REPORT INFORMATION
  Report Type: 
  Country: None (occurrence: None)
  Receive Date: 20090612
  Receipt Date: 20090612
  Transmission Date: 20091009
  Serious: No
  Sender: FDA-Public Use
  Company Number: None

PATIENT
  Age: 54 Year
  Sex: Female
  Weight: 59.8748 kg

DRUGS (1)
  1. ADVAIR HFA [Suspect]
     Indication: ASTHMA
     Dosage: 100/250 TWICE DAILY PO
     Route: 048
     Dates: start: 20081201, end: 20090601

REACTIONS (5)
  - ANXIETY [None]
  - DYSPNOEA [None]
  - NASAL DISCOMFORT [None]
  - NIGHTMARE [None]
  - THROAT IRRITATION [None]
